FAERS Safety Report 8601140-3 (Version None)
Quarter: 2012Q3

REPORT INFORMATION
  Report Type: 
  Country: None (occurrence: None)
  Receive Date: 20120817
  Receipt Date: 20120813
  Transmission Date: 20120928
  Serious: Yes (Hospitalization, Other)
  Sender: FDA-Public Use
  Company Number: PHEH2012US009415

PATIENT
  Sex: Female

DRUGS (3)
  1. GLEEVEC [Suspect]
     Dosage: 400 MG, DAILY
     Route: 048
  2. GLEEVEC [Suspect]
     Dosage: 400 MG, QD
     Route: 048
  3. GLEEVEC [Suspect]
     Indication: MALIGNANT SOFT TISSUE NEOPLASM
     Dosage: 400 MG, QD
     Route: 048
     Dates: start: 20120412

REACTIONS (11)
  - PRURITUS [None]
  - NEOPLASM [None]
  - EYE OEDEMA [None]
  - SKIN DISCOLOURATION [None]
  - FATIGUE [None]
  - OEDEMA PERIPHERAL [None]
  - RASH MACULAR [None]
  - WOUND [None]
  - FACE OEDEMA [None]
  - RASH [None]
  - MALAISE [None]
